FAERS Safety Report 17820146 (Version 2)
Quarter: 2020Q3

REPORT INFORMATION
  Report Type: Spontaneous
  Country: CN (occurrence: CN)
  Receive Date: 20200525
  Receipt Date: 20200904
  Transmission Date: 20201102
  Serious: Yes (Other)
  Sender: FDA-Public Use
  Company Number: CN-ROCHE-2607157

PATIENT

DRUGS (1)
  1. RANIBIZUMAB. [Suspect]
     Active Substance: RANIBIZUMAB
     Indication: RETINAL VEIN OCCLUSION
     Route: 065
     Dates: start: 20200511

REACTIONS (3)
  - Anterior chamber disorder [Unknown]
  - Visual impairment [Recovered/Resolved]
  - Vitreous haze [Unknown]

NARRATIVE: CASE EVENT DATE: 20200512
